FAERS Safety Report 7558137-4 (Version None)
Quarter: 2011Q2

REPORT INFORMATION
  Report Type: 
  Country: None (occurrence: None)
  Receive Date: 20110620
  Receipt Date: 20110615
  Transmission Date: 20111010
  Serious: Yes (Other)
  Sender: FDA-Public Use
  Company Number: US-PFIZER INC-2011132469

PATIENT
  Age: 62 Year
  Sex: Male

DRUGS (6)
  1. LIPITOR [Concomitant]
     Dosage: UNK
  2. SOMA [Concomitant]
     Dosage: UNK
  3. LISINOPRIL [Concomitant]
  4. OXYCONTIN [Concomitant]
     Dosage: UNK
  5. LYRICA [Suspect]
     Dosage: 50 MG, 3X/DAY
  6. LORTAB [Concomitant]

REACTIONS (2)
  - DEPRESSED LEVEL OF CONSCIOUSNESS [None]
  - CEREBROVASCULAR ACCIDENT [None]
